FAERS Safety Report 5788183-2 (Version None)
Quarter: 2008Q2

REPORT INFORMATION
  Report Type: 
  Country: None (occurrence: None)
  Receive Date: 20080623
  Receipt Date: 20080612
  Transmission Date: 20081010
  Serious: Yes (Hospitalization)
  Sender: FDA-Public Use
  Company Number: 231191J08USA

PATIENT
  Age: 62 Year
  Sex: Female
  Weight: 99.7913 kg

DRUGS (14)
  1. REBIF [Suspect]
     Indication: MULTIPLE SCLEROSIS
     Dosage: 44 MCG, 3 IN 1 WEEKS, SUBCUTANEOUS
     Route: 058
     Dates: start: 20061122, end: 20080301
  2. PREMPRO [Suspect]
     Indication: HORMONE REPLACEMENT THERAPY
     Dates: start: 19970101, end: 20070701
  3. CELEBREX [Suspect]
     Indication: MULTIPLE SCLEROSIS
     Dates: end: 20070701
  4. CELEBREX [Suspect]
     Indication: PAIN
     Dates: end: 20070701
  5. SYNTHROID [Concomitant]
  6. PRAVASTATIN [Concomitant]
  7. IBUPROFEN [Concomitant]
  8. PURPLE PILL (ALL OTHER THERAPEUTIC PRODUCTS) [Concomitant]
  9. COZAAR [Concomitant]
  10. DILTIAZEM [Concomitant]
  11. WELLBUTRIN [Concomitant]
  12. SEROQUEL [Concomitant]
  13. ZETIA [Concomitant]
  14. TRICOR [Concomitant]

REACTIONS (10)
  - ACUTE MYOCARDIAL INFARCTION [None]
  - ANAEMIA [None]
  - CORONARY ARTERY OCCLUSION [None]
  - IN-STENT CORONARY ARTERY RESTENOSIS [None]
  - LYMPHOCYTE COUNT INCREASED [None]
  - MULTIPLE SCLEROSIS [None]
  - RED BLOOD CELL SEDIMENTATION RATE INCREASED [None]
  - SINUSITIS [None]
  - VERTIGO [None]
  - WHITE BLOOD CELL COUNT DECREASED [None]
